FAERS Safety Report 20880344 (Version 1)
Quarter: 2022Q2

REPORT INFORMATION
  Report Type: Spontaneous
  Country: US (occurrence: US)
  Receive Date: 20220526
  Receipt Date: 20220526
  Transmission Date: 20220720
  Serious: No
  Sender: FDA-Public Use
  Company Number: US-RADIUS HEALTH INC.-2021US001347

PATIENT
  Sex: Female
  Weight: 56.689 kg

DRUGS (1)
  1. TYMLOS [Suspect]
     Active Substance: ABALOPARATIDE
     Indication: Senile osteoporosis
     Dosage: 80 MCG, QD
     Route: 058
     Dates: start: 202101, end: 202108

REACTIONS (4)
  - Supraventricular tachycardia [Unknown]
  - Bone pain [Unknown]
  - Dizziness [Unknown]
  - Arthralgia [Unknown]
